FAERS Safety Report 7680064-2 (Version None)
Quarter: 2011Q3

REPORT INFORMATION
  Report Type: 
  Country: None (occurrence: None)
  Receive Date: 20110812
  Receipt Date: 20110810
  Transmission Date: 20111222
  Serious: No
  Sender: FDA-Public Use
  Company Number: US-TEVA-296053USA

PATIENT
  Sex: Female
  Weight: 79.45 kg

DRUGS (1)
  1. PLAN B ONE-STEP [Suspect]
     Indication: POST COITAL CONTRACEPTION
     Dosage: 1.5 MILLIGRAM;
     Route: 048
     Dates: start: 20110720, end: 20110720

REACTIONS (6)
  - ABDOMINAL DISCOMFORT [None]
  - VOMITING [None]
  - NIPPLE PAIN [None]
  - MENSTRUATION DELAYED [None]
  - LOCAL SWELLING [None]
  - PAROSMIA [None]
